FAERS Safety Report 24030824 (Version 1)
Quarter: 2024Q2

REPORT INFORMATION
  Report Type: Report from Study
  Country: FR (occurrence: None)
  Receive Date: 20240628
  Receipt Date: 20240628
  Transmission Date: 20240716
  Serious: Yes (Other)
  Sender: FDA-Public Use
  Company Number: 2023A245701

PATIENT
  Sex: Male
  Weight: 73 kg

DRUGS (3)
  1. IMFINZI [Suspect]
     Active Substance: DURVALUMAB
     Indication: Biliary cancer metastatic
     Route: 042
     Dates: start: 20230710
  2. GEMCITABINE [Concomitant]
     Active Substance: GEMCITABINE
  3. CISPLATIN [Concomitant]
     Active Substance: CISPLATIN

REACTIONS (5)
  - Haematotoxicity [Recovered/Resolved]
  - Folliculitis [Unknown]
  - Asthenia [Unknown]
  - Constipation [Unknown]
  - Renal impairment [Unknown]
